FAERS Safety Report 4766871-4 (Version None)
Quarter: 2005Q3

REPORT INFORMATION
  Report Type: 
  Country: None (occurrence: None)
  Receive Date: 20050909
  Receipt Date: 20050831
  Transmission Date: 20060218
  Serious: Yes (Disabling)
  Sender: FDA-Public Use
  Company Number: 2005047090

PATIENT
  Age: 35 Year
  Sex: Male
  Weight: 72 kg

DRUGS (6)
  1. RELPAX [Suspect]
     Indication: MIGRAINE
     Dosage: 40 MG, ORAL
     Route: 048
  2. BENZODIAZEPINE DERIVATIVES (BENZODIAZEPINE DERIVATIVES) [Concomitant]
  3. ANTIINFLAMMATORY/ANTIRHEUMATIC PRODUCTS (ANTIINFLAMMATORY/ANTIRHEUMATI [Concomitant]
  4. XANAX [Concomitant]
  5. LAROXYL (AMITRIPTYLOINE HDYROCHLORIDE) [Concomitant]
  6. TOPIRAMATE [Concomitant]

REACTIONS (1)
  - POLYARTHRITIS [None]
